FAERS Safety Report 9396015 (Version 1)
Quarter: 2013Q3

REPORT INFORMATION
  Report Type: Spontaneous
  Country: IN (occurrence: None)
  Receive Date: 20130708
  Receipt Date: 20130708
  Transmission Date: 20140515
  Serious: Yes (Hospitalization)
  Sender: FDA-Public Use
  Company Number: 2013P1010826

PATIENT
  Age: 26 Year
  Sex: Male

DRUGS (1)
  1. ISONIAZID [Suspect]
     Indication: TUBERCULOSIS

REACTIONS (5)
  - Convulsion [None]
  - Blood glucose increased [None]
  - Blood chloride increased [None]
  - Status epilepticus [None]
  - Vitamin B6 deficiency [None]
